FAERS Safety Report 7212556-4 (Version None)
Quarter: 2011Q1

REPORT INFORMATION
  Report Type: 
  Country: None (occurrence: None)
  Receive Date: 20110106
  Receipt Date: 20110103
  Transmission Date: 20110831
  Serious: Yes (Life-Threatening, Hospitalization, Other)
  Sender: FDA-Public Use
  Company Number: PHHY2010US71116

PATIENT
  Sex: Female
  Weight: 56 kg

DRUGS (1)
  1. RECLAST [Suspect]
     Dosage: UNK
     Dates: start: 20091101

REACTIONS (3)
  - NEURALGIA [None]
  - TOOTHACHE [None]
  - MYOCARDIAL INFARCTION [None]
